FAERS Safety Report 4586835-3 (Version None)
Quarter: 2005Q1

REPORT INFORMATION
  Report Type: 
  Country: None (occurrence: None)
  Receive Date: 20050215
  Receipt Date: 20050201
  Transmission Date: 20050727
  Serious: Yes (Hospitalization)
  Sender: FDA-Public Use
  Company Number: 206823

PATIENT
  Age: 49 Year
  Sex: Female
  Weight: 72.5755 kg

DRUGS (11)
  1. AVONEX [Suspect]
     Indication: MULTIPLE SCLEROSIS
     Dosage: 30 UG; QW; IM
     Route: 030
     Dates: start: 20010801, end: 20020801
  2. AVONEX [Suspect]
     Indication: MULTIPLE SCLEROSIS
     Dosage: 30 UG; QW; IM
     Route: 030
     Dates: start: 20030901, end: 20031101
  3. AVONEX [Suspect]
     Indication: MULTIPLE SCLEROSIS
     Dosage: 30 UG; QW; IM
     Route: 029
     Dates: start: 20031101, end: 20050101
  4. LEVOTHYROXINE SODIUM [Concomitant]
  5. PREMARIN [Concomitant]
  6. GABAPENTIN [Concomitant]
  7. LIORESAL [Concomitant]
  8. HYDROCODONE BITARTRATE AND IBUPROFEN [Concomitant]
  9. TOLTERODINE TARTRATE [Concomitant]
  10. FOLIC ACID [Concomitant]
  11. COUMADIN [Concomitant]

REACTIONS (13)
  - DEHYDRATION [None]
  - GASTROINTESTINAL DISORDER [None]
  - IMPAIRED GASTRIC EMPTYING [None]
  - INJECTION SITE HAEMORRHAGE [None]
  - NAUSEA [None]
  - PLATELET COUNT DECREASED [None]
  - PYELONEPHRITIS [None]
  - RESPIRATORY TRACT INFECTION [None]
  - SYSTEMIC LUPUS ERYTHEMATOSUS [None]
  - THERAPY NON-RESPONDER [None]
  - URINARY INCONTINENCE [None]
  - URINARY TRACT INFECTION [None]
  - VOMITING [None]
